FAERS Safety Report 6433381-8 (Version None)
Quarter: 2009Q4

REPORT INFORMATION
  Report Type: 
  Country: None (occurrence: None)
  Receive Date: 20091109
  Receipt Date: 20091103
  Transmission Date: 20100525
  Serious: Yes (Other)
  Sender: FDA-Public Use
  Company Number: US-MERCK-0911USA00559

PATIENT
  Sex: Male

DRUGS (1)
  1. ZOCOR [Suspect]
     Route: 048
     Dates: start: 20010101

REACTIONS (1)
  - PROSTATE CANCER [None]
